FAERS Safety Report 18432029 (Version 3)
Quarter: 2020Q4

REPORT INFORMATION
  Report Type: Spontaneous
  Country: US (occurrence: US)
  Receive Date: 20201027
  Receipt Date: 20201206
  Transmission Date: 20210114
  Serious: No
  Sender: FDA-Public Use
  Company Number: US-JNJFOC-20201032769

PATIENT
  Age: 74 Year
  Sex: Female

DRUGS (2)
  1. STELARA [Suspect]
     Active Substance: USTEKINUMAB
  2. STELARA [Suspect]
     Active Substance: USTEKINUMAB
     Indication: CROHN^S DISEASE
     Route: 058

REACTIONS (4)
  - Product dose omission issue [Unknown]
  - Inappropriate schedule of product administration [Unknown]
  - Product label issue [Unknown]
  - Off label use [Unknown]

NARRATIVE: CASE EVENT DATE: 20201020
